FAERS Safety Report 15276082 (Version 1)
Quarter: 2018Q3

REPORT INFORMATION
  Report Type: Spontaneous
  Country: US (occurrence: US)
  Receive Date: 20180727
  Receipt Date: 20180727
  Transmission Date: 20181010
  Serious: No
  Sender: FDA-Public Use
  Company Number: None

PATIENT
  Age: 45 Year
  Sex: Male

DRUGS (11)
  1. EMTRICITABINE + TENOFOVIR [Concomitant]
     Active Substance: EMTRICITABINE\TENOFOVIR
  2. DOLUTEGRAVIR [Concomitant]
     Active Substance: DOLUTEGRAVIR
  3. ASPIRIN. [Concomitant]
     Active Substance: ASPIRIN
  4. POTASSIUM PHOSPHATE [Concomitant]
     Active Substance: POTASSIUM PHOSPHATE
  5. GABAPENTIN. [Concomitant]
     Active Substance: GABAPENTIN
  6. MAGNESIYM SULFATE [Concomitant]
  7. SULFAMETHOXAZOLE/TRIMETHOPRIM [Concomitant]
     Active Substance: SULFAMETHOXAZOLE\TRIMETHOPRIM
  8. FLUCONAZOLE. [Concomitant]
     Active Substance: FLUCONAZOLE
  9. ATORVASTTIN [Concomitant]
  10. CLOPIDOGREL [Concomitant]
     Active Substance: CLOPIDOGREL BISULFATE
  11. METHADONE [Suspect]
     Active Substance: METHADONE HYDROCHLORIDE
     Indication: ANTIBIOTIC PROPHYLAXIS
     Route: 048
     Dates: start: 20180608, end: 20180611

REACTIONS (4)
  - Therapy change [None]
  - Electrocardiogram QT prolonged [None]
  - Anxiety [None]
  - Refusal of treatment by patient [None]

NARRATIVE: CASE EVENT DATE: 20180611
